FAERS Safety Report 13254119 (Version 4)
Quarter: 2017Q2

REPORT INFORMATION
  Report Type: Spontaneous
  Country: PT (occurrence: PT)
  Receive Date: 20170221
  Receipt Date: 20170425
  Transmission Date: 20170830
  Serious: Yes (Other)
  Sender: FDA-Public Use
  Company Number: PT-BAXTER-2017BAX007016

PATIENT
  Age: 26 Year
  Sex: Female
  Weight: 57 kg

DRUGS (1)
  1. BREVIBLOC [Suspect]
     Active Substance: ESMOLOL HYDROCHLORIDE
     Indication: OCCUPATIONAL EXPOSURE TO PRODUCT
     Dosage: 250 ML BAG; 1 UNIT
     Route: 065
     Dates: start: 20170203, end: 20170203

REACTIONS (5)
  - Rash generalised [Recovered/Resolved]
  - Dyspnoea [Recovered/Resolved]
  - Cough [Recovered/Resolved]
  - Oropharyngeal discomfort [Recovered/Resolved]
  - Occupational exposure to product [Recovered/Resolved]

NARRATIVE: CASE EVENT DATE: 20170203
